FAERS Safety Report 6526806-0 (Version None)
Quarter: 2010Q1

REPORT INFORMATION
  Report Type: 
  Country: None (occurrence: None)
  Receive Date: 20100104
  Receipt Date: 20100104
  Transmission Date: 20100710
  Serious: Yes (Hospitalization)
  Sender: FDA-Public Use
  Company Number: None

PATIENT
  Sex: Male
  Weight: 92.0802 kg

DRUGS (2)
  1. FOSINOPRIL SODIUM [Suspect]
     Indication: ATRIAL FIBRILLATION
     Dosage: 10MG PO QD
     Dates: start: 20040417
  2. FOSINOPRIL SODIUM [Suspect]
     Indication: HYPERTENSION
     Dosage: 10MG PO QD
     Dates: start: 20040417

REACTIONS (1)
  - ATRIAL FIBRILLATION [None]
